FAERS Safety Report 4342430-2 (Version None)
Quarter: 2004Q2

REPORT INFORMATION
  Report Type: 
  Country: None (occurrence: None)
  Receive Date: 20040413
  Receipt Date: 20040401
  Transmission Date: 20050107
  Serious: Yes (Other)
  Sender: FDA-Public Use
  Company Number: NSADSS2002018147

PATIENT
  Age: 53 Year
  Sex: Female

DRUGS (3)
  1. REMICADE [Suspect]
     Indication: RHEUMATOID ARTHRITIS
     Dosage: SEE IMAGE
     Route: 041
     Dates: start: 20020219, end: 20020219
  2. METHOTREXATE [Concomitant]
  3. CORTICOSTEROID NOS (CORTICOSTEROID NOS) [Concomitant]

REACTIONS (5)
  - COUGH [None]
  - DYSPNOEA [None]
  - NERVOUSNESS [None]
  - OROPHARYNGEAL SPASM [None]
  - URTICARIA [None]
